FAERS Safety Report 6959524-5 (Version None)
Quarter: 2010Q3

REPORT INFORMATION
  Report Type: 
  Country: None (occurrence: None)
  Receive Date: 20100827
  Receipt Date: 20100818
  Transmission Date: 20110219
  Serious: Yes (Hospitalization)
  Sender: FDA-Public Use
  Company Number: TPA2010A04603

PATIENT
  Age: 55 Year
  Sex: Female
  Weight: 47.1741 kg

DRUGS (1)
  1. ACTOPLUS MET [Suspect]
     Indication: TYPE 2 DIABETES MELLITUS
     Dosage: 15/500 MG, 2 IN 1 D, PER ORAL
     Route: 048
     Dates: start: 20100718, end: 20100701

REACTIONS (1)
  - RENAL DISORDER [None]
